FAERS Safety Report 4781836-4 (Version None)
Quarter: 2005Q3

REPORT INFORMATION
  Report Type: 
  Country: None (occurrence: None)
  Receive Date: 20050928
  Receipt Date: 20050919
  Transmission Date: 20060218
  Serious: Yes (Life-Threatening)
  Sender: FDA-Public Use
  Company Number: FR-ABBOTT-05P-056-0311368-00

PATIENT
  Sex: Female

DRUGS (1)
  1. DEPAKENE [Suspect]
     Indication: DRUG EXPOSURE DURING PREGNANCY

REACTIONS (10)
  - AMNIOCENTESIS ABNORMAL [None]
  - BREECH PRESENTATION [None]
  - CONVULSION [None]
  - FOETAL DISTRESS SYNDROME [None]
  - FOETAL HEART RATE ABNORMAL [None]
  - HYPOCOAGULABLE STATE [None]
  - HYPOGLYCAEMIA NEONATAL [None]
  - NEONATAL RESPIRATORY DISTRESS SYNDROME [None]
  - THROMBOCYTOPENIA [None]
  - UMBILICAL CORD AROUND NECK [None]
